FAERS Safety Report 5337837-0 (Version None)
Quarter: 2007Q2

REPORT INFORMATION
  Report Type: 
  Country: None (occurrence: None)
  Receive Date: 20070308
  Receipt Date: 20061213
  Transmission Date: 20071010
  Serious: No
  Sender: FDA-Public Use
  Company Number: 2006-BP-14502BP

PATIENT
  Age: 53 Year
  Sex: Female
  Weight: 43.1 kg

DRUGS (4)
  1. SPIRIVA [Suspect]
     Dosage: NR (18 MG), IH
     Route: 055
  2. ADVAIR DISKUS 100/50 [Suspect]
  3. ALBUTEROL [Concomitant]
  4. DIAZEPAM [Concomitant]

REACTIONS (2)
  - DYSPNOEA [None]
  - OEDEMA PERIPHERAL [None]
